FAERS Safety Report 12901635 (Version 3)
Quarter: 2016Q4

REPORT INFORMATION
  Report Type: Spontaneous
  Country: US (occurrence: US)
  Receive Date: 20161102
  Receipt Date: 20161121
  Transmission Date: 20170207
  Serious: Yes (Hospitalization)
  Sender: FDA-Public Use
  Company Number: US-UCBSA-2016041200

PATIENT
  Age: 30 Year
  Sex: Female
  Weight: 61 kg

DRUGS (2)
  1. VIMPAT [Suspect]
     Active Substance: LACOSAMIDE
     Indication: SEIZURE
     Dosage: 15 ML, 2X/DAY (BID)
     Route: 048
     Dates: start: 201608, end: 20161109
  2. KEPPRA [Suspect]
     Active Substance: LEVETIRACETAM
     Indication: SEIZURE
     Dosage: 10 ML, 2X/DAY (BID)
     Route: 048

REACTIONS (11)
  - Lip swelling [Recovered/Resolved]
  - Insomnia [Recovered/Resolved]
  - Rash [Recovered/Resolved]
  - Pharyngeal oedema [Recovered/Resolved]
  - Generalised tonic-clonic seizure [Recovered/Resolved]
  - Seizure [Not Recovered/Not Resolved]
  - Liver function test increased [Unknown]
  - Aggression [Recovered/Resolved]
  - Agitation [Recovered/Resolved]
  - Swollen tongue [Recovered/Resolved]
  - Ammonia increased [Unknown]

NARRATIVE: CASE EVENT DATE: 201608
